FAERS Safety Report 12286584 (Version 1)
Quarter: 2016Q2

REPORT INFORMATION
  Report Type: Report from Study
  Country: US (occurrence: US)
  Receive Date: 20160420
  Receipt Date: 20160420
  Transmission Date: 20160815
  Serious: Yes (Death, Other)
  Sender: FDA-Public Use
  Company Number: US-AMGEN-USASP2014039256

PATIENT
  Age: 67 Year
  Sex: Female

DRUGS (1)
  1. PROCRIT [Suspect]
     Active Substance: ERYTHROPOIETIN
     Indication: PRODUCT USED FOR UNKNOWN INDICATION
     Dosage: UNK
     Route: 065

REACTIONS (12)
  - Hepatic cancer [Unknown]
  - Diabetes mellitus [Unknown]
  - Carcinoembryonic antigen increased [Unknown]
  - Thalassaemia beta [Unknown]
  - Palpitations [Unknown]
  - Bile duct cancer [Unknown]
  - Prothrombin time prolonged [Unknown]
  - Carotid endarterectomy [Unknown]
  - Chronic kidney disease [Unknown]
  - Abdominal discomfort [Not Recovered/Not Resolved]
  - Antiphospholipid antibodies [Unknown]
  - Death [Fatal]
